FAERS Safety Report 16455125 (Version 1)
Quarter: 2019Q2

REPORT INFORMATION
  Report Type: Spontaneous
  Country: US (occurrence: US)
  Receive Date: 20190619
  Receipt Date: 20190619
  Transmission Date: 20190711
  Serious: No
  Sender: FDA-Public Use
  Company Number: US-ROCHE-2275181

PATIENT

DRUGS (7)
  1. METHOTREXATE. [Concomitant]
     Active Substance: METHOTREXATE
     Route: 065
  2. DYNABAC [Concomitant]
     Active Substance: DIRITHROMYCIN
     Indication: HYPERSENSITIVITY
  3. ACTEMRA [Suspect]
     Active Substance: TOCILIZUMAB
     Indication: RHEUMATOID ARTHRITIS
     Route: 058
     Dates: start: 201509, end: 201810
  4. NIACIN. [Concomitant]
     Active Substance: NIACIN
     Indication: HYPERSENSITIVITY
  5. CIMZIA [Concomitant]
     Active Substance: CERTOLIZUMAB PEGOL
     Indication: URTICARIA
  6. ORENCIA [Concomitant]
     Active Substance: ABATACEPT
     Indication: BLOOD PRESSURE INCREASED
     Route: 042
     Dates: start: 201406, end: 201410
  7. ORENCIA [Concomitant]
     Active Substance: ABATACEPT
     Route: 058
     Dates: start: 201504, end: 201509

REACTIONS (2)
  - Pain [Unknown]
  - Drug ineffective [Unknown]
